FAERS Safety Report 12194712 (Version 1)
Quarter: 2016Q1

REPORT INFORMATION
  Report Type: Spontaneous
  Country: US (occurrence: US)
  Receive Date: 20160321
  Receipt Date: 20160321
  Transmission Date: 20160526
  Serious: No
  Sender: FDA-Public Use
  Company Number: US-TEVA-604103USA

PATIENT
  Sex: Female

DRUGS (1)
  1. IRBESARTAN. [Suspect]
     Active Substance: IRBESARTAN
     Indication: BLOOD PRESSURE ABNORMAL
     Dosage: DOSE AND FREQUENCY NOT PROVIDED
     Route: 065
     Dates: end: 2013

REACTIONS (2)
  - Blood pressure abnormal [Unknown]
  - Drug ineffective [Unknown]
